FAERS Safety Report 7721445-8 (Version None)
Quarter: 2011Q3

REPORT INFORMATION
  Report Type: 
  Country: None (occurrence: None)
  Receive Date: 20110831
  Receipt Date: 20110825
  Transmission Date: 20111222
  Serious: Yes (Hospitalization)
  Sender: FDA-Public Use
  Company Number: US-ROCHE-799415

PATIENT
  Sex: Female

DRUGS (1)
  1. TAMIFLU [Suspect]
     Route: 065
     Dates: start: 20070101

REACTIONS (1)
  - HALLUCINATION [None]
